FAERS Safety Report 20864389 (Version 2)
Quarter: 2022Q2

REPORT INFORMATION
  Report Type: Report from Study
  Country: PH (occurrence: PH)
  Receive Date: 20220523
  Receipt Date: 20220624
  Transmission Date: 20220721
  Serious: Yes (Other)
  Sender: FDA-Public Use
  Company Number: PH-JNJFOC-20220533108

PATIENT
  Sex: Male

DRUGS (5)
  1. IMBRUVICA [Suspect]
     Active Substance: IBRUTINIB
     Indication: Chronic lymphocytic leukaemia
     Route: 048
     Dates: start: 202201, end: 202202
  2. FOLIC ACID [Concomitant]
     Active Substance: FOLIC ACID
     Indication: Product used for unknown indication
     Route: 048
  3. PROFERRIN ES [Concomitant]
     Indication: Product used for unknown indication
     Route: 048
     Dates: start: 202201, end: 202202
  4. RITUXIMAB [Concomitant]
     Active Substance: RITUXIMAB
     Indication: Product used for unknown indication
     Route: 042
     Dates: start: 20220404, end: 20220404
  5. RITUXIMAB [Concomitant]
     Active Substance: RITUXIMAB
     Route: 042
     Dates: start: 20220428, end: 20220428

REACTIONS (3)
  - Haemolysis [Not Recovered/Not Resolved]
  - Drug ineffective [Unknown]
  - Haemoglobin decreased [Unknown]
